FAERS Safety Report 24833809 (Version 1)
Quarter: 2025Q1

REPORT INFORMATION
  Report Type: Spontaneous
  Country: US (occurrence: US)
  Receive Date: 20250112
  Receipt Date: 20250112
  Transmission Date: 20250409
  Serious: Yes (Hospitalization)
  Sender: PFIZER
  Company Number: US-PFIZER INC-PV202500002415

PATIENT
  Age: 72 Year
  Sex: Female
  Weight: 106 kg

DRUGS (4)
  1. IBRANCE [Suspect]
     Active Substance: PALBOCICLIB
     Indication: Breast cancer
     Dosage: 125 MG (1 CAP, ORAL, DAILY)
     Route: 048
     Dates: start: 201507
  2. IBRANCE [Suspect]
     Active Substance: PALBOCICLIB
     Indication: Metastases to bone
  3. LETROZOLE [Concomitant]
     Active Substance: LETROZOLE
  4. XGEVA [Concomitant]
     Active Substance: DENOSUMAB

REACTIONS (3)
  - Traumatic haematoma [Unknown]
  - Fall [Unknown]
  - Neoplasm progression [Unknown]

NARRATIVE: CASE EVENT DATE: 20220901
